FAERS Safety Report 7723064-6 (Version None)
Quarter: 2011Q3

REPORT INFORMATION
  Report Type: 
  Country: None (occurrence: None)
  Receive Date: 20110901
  Receipt Date: 20110216
  Transmission Date: 20111222
  Serious: No
  Sender: FDA-Public Use
  Company Number: US-BAYER-2011-015952

PATIENT
  Age: 19 Year
  Sex: Female

DRUGS (1)
  1. MIRENA [Suspect]
     Indication: CONTRACEPTION
     Dosage: 20 MCG/24HR, UNK
     Route: 015
     Dates: start: 20110201

REACTIONS (5)
  - HEADACHE [None]
  - DEVICE DISLOCATION [None]
  - PENILE PAIN [None]
  - VAGINAL DISCHARGE [None]
  - VAGINAL ODOUR [None]
